FAERS Safety Report 5482208-X (Version None)
Quarter: 2007Q4

REPORT INFORMATION
  Report Type: 
  Country: None (occurrence: None)
  Receive Date: 20071011
  Receipt Date: 20071004
  Transmission Date: 20080405
  Serious: Yes (Death)
  Sender: FDA-Public Use
  Company Number: US-AVENTIS-200713802US

PATIENT
  Sex: Female
  Weight: 72 kg

DRUGS (3)
  1. APIDRA [Suspect]
     Dosage: DOSE: VIA PUMP ON SLIDING SCALE
     Dates: end: 20070222
  2. HUMALOG [Concomitant]
     Dosage: DOSE: UNK
  3. DIAZEPAM [Concomitant]
     Dosage: DOSE: UNK

REACTIONS (2)
  - COMPLETED SUICIDE [None]
  - HYPOGLYCAEMIA [None]
